FAERS Safety Report 5764960-9 (Version None)
Quarter: 2008Q2

REPORT INFORMATION
  Report Type: 
  Country: None (occurrence: None)
  Receive Date: 20080611
  Receipt Date: 20080606
  Transmission Date: 20081010
  Serious: Yes (Other)
  Sender: FDA-Public Use
  Company Number: B0523985A

PATIENT

DRUGS (6)
  1. PAXIL [Suspect]
     Indication: PANIC DISORDER
     Route: 048
  2. DEPAS [Concomitant]
     Route: 048
  3. DEPAS [Concomitant]
     Route: 048
  4. WYPAX [Concomitant]
     Route: 048
  5. WYPAX [Concomitant]
     Route: 048
  6. RHYTHMY [Concomitant]
     Route: 048

REACTIONS (20)
  - APATHY [None]
  - ASTHENIA [None]
  - DRUG WITHDRAWAL SYNDROME [None]
  - DYSARTHRIA [None]
  - EMOTIONAL DISTRESS [None]
  - FALL [None]
  - FRACTURE [None]
  - HALLUCINATION [None]
  - HEAD DISCOMFORT [None]
  - HYPERHIDROSIS [None]
  - HYPOAESTHESIA [None]
  - IRRITABILITY [None]
  - MUSCLE SPASMS [None]
  - PHYSICAL ASSAULT [None]
  - RESTLESSNESS [None]
  - SEROTONIN SYNDROME [None]
  - SOCIAL AVOIDANT BEHAVIOUR [None]
  - SUICIDAL IDEATION [None]
  - THIRST [None]
  - WEIGHT INCREASED [None]
